FAERS Safety Report 7639235-3 (Version None)
Quarter: 2011Q3

REPORT INFORMATION
  Report Type: 
  Country: None (occurrence: None)
  Receive Date: 20110727
  Receipt Date: 20110720
  Transmission Date: 20111222
  Serious: Yes (Other)
  Sender: FDA-Public Use
  Company Number: US-JNJFOC-20110708778

PATIENT
  Sex: Male
  Weight: 90.72 kg

DRUGS (4)
  1. ZOLOFT [Concomitant]
     Indication: ANXIETY
     Route: 048
  2. CYCLOBENZAPRINE [Concomitant]
     Indication: MUSCLE SPASMS
     Route: 048
  3. ZOLOFT [Concomitant]
     Indication: DEPRESSION
     Route: 048
  4. FENTANYL-100 [Suspect]
     Indication: SPINAL DISORDER
     Route: 062

REACTIONS (9)
  - PRODUCT QUALITY ISSUE [None]
  - DEPRESSION [None]
  - TOOTH INFECTION [None]
  - OSTEITIS [None]
  - SLEEP DISORDER [None]
  - MIGRAINE [None]
  - HYPERTENSION [None]
  - RESTLESS LEGS SYNDROME [None]
  - DRUG DOSE OMISSION [None]
